FAERS Safety Report 17276769 (Version 14)
Quarter: 2024Q2

REPORT INFORMATION
  Report Type: Spontaneous
  Country: US (occurrence: US)
  Receive Date: 20200116
  Receipt Date: 20240614
  Transmission Date: 20240716
  Serious: Yes (Hospitalization, Other)
  Sender: FDA-Public Use
  Company Number: US-PFIZER INC-2020017233

PATIENT
  Age: 73 Year
  Sex: Female

DRUGS (9)
  1. XELJANZ [Suspect]
     Active Substance: TOFACITINIB CITRATE
     Indication: Rheumatoid arthritis
     Dosage: 5 MG, DAILY
     Route: 048
     Dates: start: 201907
  2. XELJANZ [Suspect]
     Active Substance: TOFACITINIB CITRATE
     Indication: Arthritis
     Dosage: 5 MG, 2X/DAY
     Route: 048
     Dates: start: 201907, end: 2020
  3. XELJANZ [Suspect]
     Active Substance: TOFACITINIB CITRATE
     Dosage: 5 MG, 2X/DAY
     Route: 048
     Dates: start: 202002, end: 202011
  4. XELJANZ [Suspect]
     Active Substance: TOFACITINIB CITRATE
     Dosage: 5 MG, 1X/DAY
     Route: 048
     Dates: start: 202010
  5. XELJANZ [Suspect]
     Active Substance: TOFACITINIB CITRATE
     Dosage: 5 MG, 1X/DAY
     Route: 048
     Dates: start: 202011
  6. XELJANZ [Suspect]
     Active Substance: TOFACITINIB CITRATE
     Dosage: 10 MG, 1X/DAY
     Route: 048
  7. XELJANZ [Suspect]
     Active Substance: TOFACITINIB CITRATE
     Dosage: 5 MG, 1X/DAY
     Route: 048
     Dates: start: 20210101
  8. XELJANZ [Suspect]
     Active Substance: TOFACITINIB CITRATE
     Dosage: 5 MG, 1X/DAY
     Route: 048
     Dates: start: 2022
  9. LIDODERM [Concomitant]
     Active Substance: LIDOCAINE
     Indication: Blood cholesterol increased
     Dosage: UNK

REACTIONS (15)
  - Diarrhoea [Recovering/Resolving]
  - Tuberculosis [Unknown]
  - Cataract [Unknown]
  - Therapeutic product effect incomplete [Unknown]
  - Therapeutic response unexpected [Unknown]
  - Grip strength decreased [Unknown]
  - Muscular weakness [Unknown]
  - Abdominal discomfort [Unknown]
  - Heart rate increased [Recovered/Resolved]
  - Hypertension [Not Recovered/Not Resolved]
  - Vomiting [Recovered/Resolved]
  - Nausea [Recovered/Resolved]
  - Memory impairment [Unknown]
  - Product dose omission in error [Unknown]
  - Off label use [Unknown]

NARRATIVE: CASE EVENT DATE: 20200101
